FAERS Safety Report 14367368 (Version 2)
Quarter: 2018Q1

REPORT INFORMATION
  Report Type: Spontaneous
  Country: US (occurrence: US)
  Receive Date: 20180109
  Receipt Date: 20180316
  Transmission Date: 20180509
  Serious: No
  Sender: FDA-Public Use
  Company Number: US-ASTRAZENECA-2018SE01660

PATIENT
  Age: 851 Month
  Sex: Female
  Weight: 76.2 kg

DRUGS (17)
  1. PROAIR HFA [Concomitant]
     Active Substance: ALBUTEROL SULFATE
     Indication: RESPIRATORY SYMPTOM
     Dosage: 2 PUFFS, 90 UG, EVERY 4 HOURS AS NEEDED
     Route: 055
     Dates: start: 20171227
  2. PREDNISONE. [Concomitant]
     Active Substance: PREDNISONE
     Indication: RESPIRATORY SYMPTOM
     Route: 048
     Dates: start: 20171227
  3. PULMICORT FLEXHALER [Suspect]
     Active Substance: BUDESONIDE
     Indication: RESPIRATORY SYMPTOM
     Route: 055
     Dates: start: 20171227, end: 20171227
  4. PROAIR HFA [Concomitant]
     Active Substance: ALBUTEROL SULFATE
     Indication: PNEUMONIA
     Dosage: 2 PUFFS, 90 UG, EVERY 4 HOURS AS NEEDED
     Route: 055
     Dates: start: 20171227
  5. PREDNISONE. [Concomitant]
     Active Substance: PREDNISONE
     Indication: RESPIRATORY SYMPTOM
     Route: 048
     Dates: start: 20171227
  6. ZITHROMAX [Concomitant]
     Active Substance: AZITHROMYCIN DIHYDRATE
     Indication: PNEUMONIA
     Dosage: AS DIRECTED
     Route: 048
     Dates: start: 20171227
  7. PREDNISONE. [Concomitant]
     Active Substance: PREDNISONE
     Indication: PNEUMONIA
     Route: 048
     Dates: start: 20171227
  8. PULMICORT FLEXHALER [Suspect]
     Active Substance: BUDESONIDE
     Indication: RESPIRATORY SYMPTOM
     Route: 055
     Dates: start: 201610
  9. PREDNISONE. [Concomitant]
     Active Substance: PREDNISONE
     Indication: RESPIRATORY SYMPTOM
     Route: 048
     Dates: start: 20171227
  10. PULMICORT FLEXHALER [Suspect]
     Active Substance: BUDESONIDE
     Indication: PNEUMONIA
     Route: 055
     Dates: start: 20171227, end: 20171227
  11. PREDNISONE. [Concomitant]
     Active Substance: PREDNISONE
     Indication: RESPIRATORY SYMPTOM
     Route: 048
     Dates: start: 20171227
  12. PREDNISONE. [Concomitant]
     Active Substance: PREDNISONE
     Indication: PNEUMONIA
     Route: 048
     Dates: start: 20171227
  13. PULMICORT FLEXHALER [Suspect]
     Active Substance: BUDESONIDE
     Indication: RESPIRATORY SYMPTOM
     Route: 055
     Dates: start: 20171227
  14. PULMICORT FLEXHALER [Suspect]
     Active Substance: BUDESONIDE
     Indication: PRODUCTIVE COUGH
     Route: 055
     Dates: start: 20171227, end: 20171227
  15. PREDNISONE. [Concomitant]
     Active Substance: PREDNISONE
     Indication: PNEUMONIA
     Route: 048
     Dates: start: 20171227
  16. PREDNISONE. [Concomitant]
     Active Substance: PREDNISONE
     Indication: PNEUMONIA
     Route: 048
     Dates: start: 20171227
  17. ZITHROMAX [Concomitant]
     Active Substance: AZITHROMYCIN DIHYDRATE
     Indication: RESPIRATORY SYMPTOM
     Dosage: AS DIRECTED
     Route: 048
     Dates: start: 20171227

REACTIONS (6)
  - Device malfunction [Unknown]
  - Pneumonia [Unknown]
  - Product use in unapproved indication [Unknown]
  - Productive cough [Unknown]
  - Intentional product misuse [Unknown]
  - Off label use [Unknown]

NARRATIVE: CASE EVENT DATE: 201610
